FAERS Safety Report 5224720-4 (Version None)
Quarter: 2007Q1

REPORT INFORMATION
  Report Type: 
  Country: None (occurrence: None)
  Receive Date: 20070129
  Receipt Date: 20070129
  Transmission Date: 20070707
  Serious: No
  Sender: FDA-Public Use
  Company Number: None

PATIENT
  Age: 60 Year
  Sex: Female
  Weight: 111.5849 kg

DRUGS (3)
  1. TOPAMAX [Suspect]
     Indication: ANXIETY
     Dosage: 25MG TWICE DAILY ORALLY
     Route: 048
     Dates: start: 20061120, end: 20061202
  2. TOPAMAX [Suspect]
     Indication: MOOD ALTERED
     Dosage: 25MG TWICE DAILY ORALLY
     Route: 048
     Dates: start: 20061120, end: 20061202
  3. RISPERDAL [Concomitant]

REACTIONS (3)
  - ABNORMAL BEHAVIOUR [None]
  - AGGRESSION [None]
  - FEELING ABNORMAL [None]
